FAERS Safety Report 17183743 (Version 2)
Quarter: 2020Q1

REPORT INFORMATION
  Report Type: Report from Study
  Country: US (occurrence: US)
  Receive Date: 20191220
  Receipt Date: 20200107
  Transmission Date: 20200409
  Serious: Yes (Hospitalization, Other)
  Sender: FDA-Public Use
  Company Number: US-PFIZER INC-2019546496

PATIENT
  Age: 69 Year
  Sex: Male
  Weight: 83.9 kg

DRUGS (19)
  1. GOCOVRI [Suspect]
     Active Substance: AMANTADINE
     Dosage: 274 MG, 1X/DAY
     Route: 048
     Dates: end: 20190922
  2. MAGNESIUM [Concomitant]
     Active Substance: MAGNESIUM
     Indication: NUTRITIONAL SUPPLEMENTATION
     Dosage: UNK
  3. ROPINIROLE. [Concomitant]
     Active Substance: ROPINIROLE
     Dosage: UNK
  4. TYLENOL [Concomitant]
     Active Substance: ACETAMINOPHEN
     Dosage: UNK, AS NEEDED
  5. GOCOVRI [Suspect]
     Active Substance: AMANTADINE
     Dosage: 274 MG, 1X/DAY
     Route: 048
     Dates: start: 20191011
  6. ENTACAPONE. [Concomitant]
     Active Substance: ENTACAPONE
     Dosage: UNK
  7. IBUPROFEN. [Concomitant]
     Active Substance: IBUPROFEN
     Dosage: UNK
  8. LIDOCAINE. [Concomitant]
     Active Substance: LIDOCAINE
     Dosage: UNK
  9. RYTARY [Concomitant]
     Active Substance: CARBIDOPA\LEVODOPA
     Dosage: UNK
  10. GOCOVRI [Suspect]
     Active Substance: AMANTADINE
     Indication: DYSKINESIA
     Dosage: 137 MG, 1X/DAY
     Route: 048
     Dates: start: 20190812, end: 20190818
  11. GOCOVRI [Suspect]
     Active Substance: AMANTADINE
     Dosage: 274 MG, 1X/DAY
     Route: 048
     Dates: start: 20190819
  12. KEPPRA [Suspect]
     Active Substance: LEVETIRACETAM
     Indication: SEIZURE
     Dosage: UNK, 1X/DAY
     Route: 048
     Dates: start: 201911
  13. VALIUM [Suspect]
     Active Substance: DIAZEPAM
     Indication: SEIZURE
     Dosage: UNK, AS NEEDED
     Route: 054
     Dates: start: 201911
  14. RASAGILINE. [Concomitant]
     Active Substance: RASAGILINE
     Dosage: UNK
  15. CEFEPIME HCL [Suspect]
     Active Substance: CEFEPIME HYDROCHLORIDE
     Dosage: UNK
     Dates: start: 201910, end: 20191105
  16. PERCOCET [Concomitant]
     Active Substance: ACETAMINOPHEN\OXYCODONE HYDROCHLORIDE
     Dosage: UNK
  17. ATIVAN [Suspect]
     Active Substance: LORAZEPAM
     Indication: SEIZURE
     Dosage: UNK
     Dates: start: 201911
  18. GOCOVRI [Suspect]
     Active Substance: AMANTADINE
     Dosage: 137 MG, 1X/DAY
     Route: 048
     Dates: start: 20191004, end: 20191010
  19. LAMOTRIGINE. [Suspect]
     Active Substance: LAMOTRIGINE
     Indication: SEIZURE
     Dosage: 25 MG, 1X/DAY
     Route: 042
     Dates: start: 201911

REACTIONS (15)
  - Muscular weakness [Not Recovered/Not Resolved]
  - Fall [Not Recovered/Not Resolved]
  - Epistaxis [Recovering/Resolving]
  - Suicide threat [Recovered/Resolved]
  - Decreased appetite [Unknown]
  - Spinal cord abscess [Not Recovered/Not Resolved]
  - Condition aggravated [Not Recovered/Not Resolved]
  - Movement disorder [Unknown]
  - Urinary tract infection [Recovered/Resolved]
  - Somnolence [Not Recovered/Not Resolved]
  - Osteomyelitis [Not Recovered/Not Resolved]
  - Epilepsy [Unknown]
  - Diplegia [Unknown]
  - Pain [Not Recovered/Not Resolved]
  - Product dose omission [Unknown]

NARRATIVE: CASE EVENT DATE: 2019
